FAERS Safety Report 7776534-9 (Version None)
Quarter: 2011Q3

REPORT INFORMATION
  Report Type: 
  Country: None (occurrence: None)
  Receive Date: 20110922
  Receipt Date: 20110922
  Transmission Date: 20111222
  Serious: Yes (Other)
  Sender: FDA-Public Use
  Company Number: None

PATIENT
  Sex: Female
  Weight: 58.9676 kg

DRUGS (1)
  1. SUBOXONE [Suspect]
     Indication: DRUG DEPENDENCE
     Dosage: 8/2 MG AM'S SUBLINGUALLY ; 4/1 2 SUBLINGUALLY
     Route: 060
     Dates: start: 20110904, end: 20110910

REACTIONS (2)
  - GLOSSODYNIA [None]
  - DRUG INTOLERANCE [None]
